FAERS Safety Report 8358599 (Version 2)
Quarter: 2012Q4

REPORT INFORMATION
  Report Type: Report from Study
  Country: DE (occurrence: DE)
  Receive Date: 20120127
  Receipt Date: 20121024
  Transmission Date: 20130627
  Serious: Yes (Other)
  Sender: FDA-Public Use
  Company Number: DE-GLAXOSMITHKLINE-B0777636A

PATIENT
  Age: 44 Year
  Sex: Female
  Weight: 66 kg

DRUGS (5)
  1. LAPATINIB [Suspect]
     Indication: BREAST CANCER
     Dosage: 750MG Per day
     Route: 048
     Dates: start: 20111129
  2. PACLITAXEL [Suspect]
     Indication: BREAST CANCER
     Dosage: 140MG Weekly
     Route: 042
     Dates: start: 20111129
  3. CARBOPLATIN [Suspect]
     Indication: BREAST CANCER
     Dosage: 300MG Weekly
     Route: 042
     Dates: start: 20111129
  4. MYOCET [Suspect]
     Indication: BREAST CANCER
     Dosage: 35MG Weekly
     Route: 042
     Dates: start: 20111129
  5. HERCEPTIN [Suspect]
     Indication: BREAST CANCER
     Dosage: 400MG Every 3 weeks
     Route: 042
     Dates: start: 20111129

REACTIONS (1)
  - Neutropenia [Recovered/Resolved]
